FAERS Safety Report 5652089-X (Version None)
Quarter: 2008Q1

REPORT INFORMATION
  Report Type: 
  Country: None (occurrence: None)
  Receive Date: 20080131
  Receipt Date: 20071029
  Transmission Date: 20080703
  Serious: No
  Sender: FDA-Public Use
  Company Number: US200710007052

PATIENT
  Age: 59 Year
  Sex: Female
  Weight: 134.7 kg

DRUGS (16)
  1. BYETTA [Suspect]
     Indication: WEIGHT DECREASED
     Dosage: 5 UG, 2/D, SUBCUTANEOUS ; 10 UG, 2/D, SUBCUTANEOUS
     Route: 058
     Dates: start: 20060101
  2. BYETTA [Suspect]
     Indication: WEIGHT DECREASED
     Dosage: 5 UG, 2/D, SUBCUTANEOUS ; 10 UG, 2/D, SUBCUTANEOUS
     Route: 058
     Dates: start: 20060101
  3. LANTUS [Concomitant]
  4. GLUCOPHAGE [Concomitant]
  5. GLIMEPIRIDE [Concomitant]
  6. TOPAMAX [Concomitant]
  7. POTASSIUM (POTASSIUM) [Concomitant]
  8. OMEPRAZOLE [Concomitant]
  9. CRESTOR [Concomitant]
  10. LISINOPRIL [Concomitant]
  11. PLAVIX [Concomitant]
  12. FUROSEMIDE [Concomitant]
  13. METOPROLOL TARTRATE [Concomitant]
  14. ASPIRIN [Concomitant]
  15. MULTIVITAMIN [Concomitant]
  16. FISH OIL (FISH OIL) [Concomitant]

REACTIONS (5)
  - BLOOD GLUCOSE DECREASED [None]
  - BLOOD GLUCOSE INCREASED [None]
  - IMPAIRED GASTRIC EMPTYING [None]
  - SEASONAL ALLERGY [None]
  - WEIGHT DECREASED [None]
